FAERS Safety Report 17430798 (Version 1)
Quarter: 2020Q1

REPORT INFORMATION
  Report Type: Spontaneous
  Country: US (occurrence: US)
  Receive Date: 20200217
  Receipt Date: 20200217
  Transmission Date: 20200409
  Serious: Yes (Congenital Anomaly)
  Sender: FDA-Public Use
  Company Number: None

PATIENT
  Age: 30 Year
  Sex: Female
  Weight: 72 kg

DRUGS (2)
  1. PRE NATAL VITAMINS [Concomitant]
     Active Substance: VITAMINS
  2. NEXPLANON [Suspect]
     Active Substance: ETONOGESTREL
     Indication: CONTRACEPTION
     Dosage: ?          QUANTITY:1 IMPLANTED IN SKIN;OTHER FREQUENCY:CONTINUOUS;?
     Route: 058
     Dates: start: 20170821, end: 20191213

REACTIONS (3)
  - Maternal exposure before pregnancy [None]
  - Abortion spontaneous [None]
  - Product label issue [None]

NARRATIVE: CASE EVENT DATE: 20200212
